FAERS Safety Report 5903065-0 (Version None)
Quarter: 2008Q3

REPORT INFORMATION
  Report Type: 
  Country: None (occurrence: None)
  Receive Date: 20080930
  Receipt Date: 20080919
  Transmission Date: 20090109
  Serious: Yes (Other)
  Sender: FDA-Public Use
  Company Number: US-ROCHE-577570

PATIENT
  Sex: Female
  Weight: 62.6 kg

DRUGS (4)
  1. CAPECITABINE [Suspect]
     Indication: BREAST CANCER
     Dosage: FORM REPORTED AS: PILLS
     Route: 065
     Dates: start: 20080601, end: 20080703
  2. CAPECITABINE [Suspect]
     Dosage: DOSAGE DECREASED DOSE REPORTED AS: 5 PILLS DAY 2 WEEKS ON/ 1 WEEK OFF
     Route: 065
     Dates: start: 20080704
  3. CAPECITABINE [Suspect]
     Dosage: TWO WEEKS ON AND ONE WEEK OFF
     Route: 065
  4. TYKERB [Concomitant]
     Indication: BREAST CANCER
     Dates: start: 20080601

REACTIONS (2)
  - ARTERIAL OCCLUSIVE DISEASE [None]
  - PALMAR-PLANTAR ERYTHRODYSAESTHESIA SYNDROME [None]
